FAERS Safety Report 15849940 (Version 2)
Quarter: 2019Q1

REPORT INFORMATION
  Report Type: Spontaneous
  Country: PT (occurrence: DE)
  Receive Date: 20190121
  Receipt Date: 20190125
  Transmission Date: 20190417
  Serious: Yes (Death, Other)
  Sender: FDA-Public Use
  Company Number: PT-SUNOVION-2019SUN000211

PATIENT

DRUGS (4)
  1. CARBAMAZEPINE. [Concomitant]
     Active Substance: CARBAMAZEPINE
     Indication: EPILEPSY
     Dosage: 1500 MG, UNK
     Dates: end: 20181126
  2. LAMOTRIGINE. [Concomitant]
     Active Substance: LAMOTRIGINE
     Indication: EPILEPSY
     Dosage: 75 MG, QD
     Route: 048
     Dates: start: 20181127, end: 20190101
  3. ZEBINIX [Suspect]
     Active Substance: ESLICARBAZEPINE ACETATE
     Indication: EPILEPSY
     Dosage: 1600 MG, QD
     Route: 048
     Dates: start: 20181127, end: 20190101
  4. LAMOTRIGINE. [Concomitant]
     Active Substance: LAMOTRIGINE
     Dosage: 75 MG, DAILY
     Route: 048
     Dates: start: 20181127, end: 20190101

REACTIONS (5)
  - Fall [Fatal]
  - Off label use [Unknown]
  - Craniocerebral injury [Fatal]
  - Seizure [Fatal]
  - Overdose [Unknown]

NARRATIVE: CASE EVENT DATE: 20181127
